FAERS Safety Report 15394400 (Version 1)
Quarter: 2018Q3

REPORT INFORMATION
  Report Type: Other
  Country: IN (occurrence: IN)
  Receive Date: 20180918
  Receipt Date: 20180918
  Transmission Date: 20181010
  Serious: Yes (Other)
  Sender: FDA-Public Use
  Company Number: IN-DENTSPLY-2018SCDP000418

PATIENT
  Age: 45 Year
  Sex: Male
  Weight: 70 kg

DRUGS (3)
  1. XYLOCAINE [Suspect]
     Active Substance: LIDOCAINE HYDROCHLORIDE
     Indication: LOCAL ANAESTHESIA
     Dosage: 15 MG, INSTILLED IN RIGHT NOSTRIL FOR LUBRICATION AND ANAESTHETISING UP TO THE NASOPHARYNX, JELLY
     Route: 045
  2. XYLOMETAZOLINE [Concomitant]
     Active Substance: XYLOMETAZOLINE
     Indication: PRODUCT USED FOR UNKNOWN INDICATION
     Dosage: NOSE DROPS
     Route: 045
  3. GLYCOPYRROLATE                     /00196201/ [Concomitant]
     Active Substance: GLYCOPYRRONIUM
     Indication: PRODUCT USED FOR UNKNOWN INDICATION
     Dosage: GIVEN BEFORE SHIFTING TO THE OPERATION THEATER
     Route: 030

REACTIONS (2)
  - Upper airway obstruction [Recovered/Resolved]
  - Stridor [Recovered/Resolved]
